FAERS Safety Report 5309042-5 (Version None)
Quarter: 2007Q2

REPORT INFORMATION
  Report Type: 
  Country: None (occurrence: None)
  Receive Date: 20070426
  Receipt Date: 20070419
  Transmission Date: 20071010
  Serious: Yes (Congenital Anomaly, Other)
  Sender: FDA-Public Use
  Company Number: US-ABBOTT-07P-163-0365715-00

PATIENT
  Sex: Female
  Weight: 34.504 kg

DRUGS (1)
  1. DEPAKOTE [Suspect]
     Indication: DRUG EXPOSURE DURING PREGNANCY
     Route: 065

REACTIONS (15)
  - ATRIAL SEPTAL DEFECT [None]
  - BLINDNESS [None]
  - CLEFT PALATE [None]
  - CONGENITAL HYDROCEPHALUS [None]
  - CONGENITAL MUSCULOSKELETAL ANOMALY [None]
  - CONVULSION [None]
  - DEVELOPMENTAL DELAY [None]
  - FOETAL ANTICONVULSANT SYNDROME [None]
  - JOINT CONTRACTURE [None]
  - JOINT DISLOCATION [None]
  - LIMB MALFORMATION [None]
  - MULTIPLE CONGENITAL ABNORMALITIES [None]
  - MUSCLE TIGHTNESS [None]
  - SYNDACTYLY [None]
  - TENDON DISORDER [None]
